FAERS Safety Report 8250906-0 (Version None)
Quarter: 2012Q2

REPORT INFORMATION
  Report Type: 
  Country: None (occurrence: None)
  Receive Date: 20120402
  Receipt Date: 20120326
  Transmission Date: 20120825
  Serious: No
  Sender: FDA-Public Use
  Company Number: US-BAYER-2012-029896

PATIENT
  Sex: Female

DRUGS (1)
  1. CLIMARA [Suspect]
     Dosage: UNK
     Dates: start: 20120312

REACTIONS (4)
  - MUSCLE SPASMS [None]
  - HOT FLUSH [None]
  - ASTHENIA [None]
  - METRORRHAGIA [None]
